FAERS Safety Report 5011438-6 (Version None)
Quarter: 2006Q2

REPORT INFORMATION
  Report Type: 
  Country: None (occurrence: None)
  Receive Date: 20060404
  Receipt Date: 20051103
  Transmission Date: 20061013
  Serious: No
  Sender: FDA-Public Use
  Company Number: US_0511123639

PATIENT
  Sex: Female

DRUGS (2)
  1. CYMBALTA [Suspect]
  2. ZYPREXA [Suspect]

REACTIONS (2)
  - DIPLOPIA [None]
  - STRABISMUS [None]
